FAERS Safety Report 6647423-8 (Version None)
Quarter: 2010Q1

REPORT INFORMATION
  Report Type: 
  Country: None (occurrence: None)
  Receive Date: 20100323
  Receipt Date: 20100209
  Transmission Date: 20100710
  Serious: Yes (Other)
  Sender: FDA-Public Use
  Company Number: US-BAXTER-2009BH011010

PATIENT
  Age: 36 Year
  Sex: Male
  Weight: 139 kg

DRUGS (19)
  1. HEPARIN SODIUM INJECTION [Suspect]
     Indication: DEEP VEIN THROMBOSIS
     Route: 040
     Dates: start: 20080216
  2. HEPARIN SODIUM INJECTION [Suspect]
     Indication: PULMONARY EMBOLISM
     Route: 040
     Dates: start: 20080216
  3. HEPARIN SODIUM INJECTION [Suspect]
     Route: 040
     Dates: start: 20080217
  4. HEPARIN SODIUM INJECTION [Suspect]
     Route: 040
     Dates: start: 20080217
  5. HEPARIN SODIUM INJECTION [Suspect]
     Route: 040
     Dates: start: 20080218
  6. HEPARIN SODIUM INJECTION [Suspect]
     Route: 040
     Dates: start: 20080218
  7. HEPARIN SODIUM INJECTION [Suspect]
     Route: 040
     Dates: start: 20080226
  8. HEPARIN SODIUM INJECTION [Suspect]
     Route: 040
     Dates: start: 20080226
  9. HEPARIN SODIUM 10,000 UNITS IN SODIUM CHLORIDE 0.45% [Suspect]
     Indication: DEEP VEIN THROMBOSIS
     Route: 041
     Dates: start: 20080216
  10. HEPARIN SODIUM 10,000 UNITS IN SODIUM CHLORIDE 0.45% [Suspect]
     Indication: PULMONARY EMBOLISM
     Route: 041
     Dates: start: 20080216
  11. TYLENOL-500 [Concomitant]
     Indication: DRUG USE FOR UNKNOWN INDICATION
     Route: 048
  12. WARFARIN SODIUM [Concomitant]
     Indication: DRUG USE FOR UNKNOWN INDICATION
     Route: 065
  13. NOVOLIN 70/30 [Concomitant]
     Indication: DRUG USE FOR UNKNOWN INDICATION
     Route: 065
  14. METOPROLOL TARTRATE [Concomitant]
     Indication: DRUG USE FOR UNKNOWN INDICATION
     Route: 065
  15. FUROSEMIDE [Concomitant]
     Indication: DRUG USE FOR UNKNOWN INDICATION
     Route: 065
  16. BYETTA [Concomitant]
     Indication: DIABETES MELLITUS
     Route: 065
  17. REPAGLINIDE [Concomitant]
     Indication: DIABETES MELLITUS
     Route: 065
  18. PRAMLINTIDE [Concomitant]
     Indication: DIABETES MELLITUS
     Route: 065
  19. MULTI-VITAMINS [Concomitant]
     Indication: DRUG USE FOR UNKNOWN INDICATION
     Route: 065

REACTIONS (9)
  - ANAEMIA [None]
  - COAGULOPATHY [None]
  - DEEP VEIN THROMBOSIS [None]
  - HEPARIN-INDUCED THROMBOCYTOPENIA [None]
  - HYPERHIDROSIS [None]
  - HYPERSENSITIVITY [None]
  - HYPERTENSION [None]
  - PULMONARY EMBOLISM [None]
  - RENAL DISORDER [None]
